FAERS Safety Report 14242236 (Version 1)
Quarter: 2017Q4

REPORT INFORMATION
  Report Type: Spontaneous
  Country: US (occurrence: US)
  Receive Date: 20171130
  Receipt Date: 20171130
  Transmission Date: 20180321
  Serious: No
  Sender: FDA-Public Use
  Company Number: None

PATIENT
  Sex: Female
  Weight: 16 kg

DRUGS (1)
  1. ANAKINRA [Suspect]
     Active Substance: ANAKINRA
     Indication: STILL^S DISEASE
     Dosage: QUANTITY:1 INJECTION(S);?
     Route: 030
     Dates: start: 20171117, end: 20171129

REACTIONS (4)
  - Serum ferritin increased [None]
  - Livedo reticularis [None]
  - Inflammation [None]
  - Rash generalised [None]

NARRATIVE: CASE EVENT DATE: 20171127
